FAERS Safety Report 14481825 (Version 2)
Quarter: 2018Q1

REPORT INFORMATION
  Report Type: Report from Study
  Country: US (occurrence: BR)
  Receive Date: 20180202
  Receipt Date: 20180207
  Transmission Date: 20180509
  Serious: Yes (Life-Threatening, Other)
  Sender: FDA-Public Use
  Company Number: US-SUNOVION-2018SUN000326

PATIENT
  Age: 69 Year
  Sex: Female
  Weight: 55 kg

DRUGS (11)
  1. ALENIA [Concomitant]
     Active Substance: BUDESONIDE\FORMOTEROL FUMARATE
     Dosage: UNK
     Dates: start: 20140626, end: 201509
  2. DAXAS [Concomitant]
     Active Substance: ROFLUMILAST
     Dosage: UNK
  3. AMLODIPINE [Concomitant]
     Active Substance: AMLODIPINE BESYLATE
  4. INDACATEROL [Suspect]
     Active Substance: INDACATEROL
     Indication: CHRONIC OBSTRUCTIVE PULMONARY DISEASE
     Dosage: 300 ?G, HS
     Route: 055
     Dates: end: 201709
  5. DIOSMIN [Concomitant]
     Active Substance: DIOSMIN
     Dosage: UNK
  6. NIFEDIPINE. [Concomitant]
     Active Substance: NIFEDIPINE
     Dosage: UNK
  7. INDACATEROL [Suspect]
     Active Substance: INDACATEROL
     Indication: EMPHYSEMA
     Dosage: 150 ?G, QD
     Route: 055
  8. RELVAR ELLIPTA [Concomitant]
     Active Substance: FLUTICASONE FUROATE\VILANTEROL TRIFENATATE
  9. SYNTHROID [Concomitant]
     Active Substance: LEVOTHYROXINE SODIUM
  10. INDACATEROL AND GLYCOPYRROLATE [Suspect]
     Active Substance: GLYCOPYRROLATE\INDACATEROL MALEATE
     Indication: CHRONIC OBSTRUCTIVE PULMONARY DISEASE
     Dosage: 1 DF (GLYCOPYRRONIUM,BROMIDE 50 UG/ INDACATEROL 110 UG) QD
     Route: 055
     Dates: start: 201709
  11. INDACATEROL AND GLYCOPYRROLATE [Suspect]
     Active Substance: GLYCOPYRROLATE\INDACATEROL MALEATE
     Indication: EMPHYSEMA
     Dosage: 1 DF  (GLYCOPYRRONIUM,BROMIDE 50 UG/ INDACATEROL 110 UG) QD
     Route: 055
     Dates: end: 20171018

REACTIONS (20)
  - Feeling abnormal [Unknown]
  - Catarrh [Recovering/Resolving]
  - Tachycardia [Recovered/Resolved]
  - Kyphosis [Unknown]
  - Sputum discoloured [Recovering/Resolving]
  - Presyncope [Recovering/Resolving]
  - Weight decreased [Unknown]
  - Tremor [Recovering/Resolving]
  - Dysstasia [Recovering/Resolving]
  - Shock [Recovering/Resolving]
  - Infection [Recovering/Resolving]
  - Condition aggravated [Unknown]
  - Malaise [Recovering/Resolving]
  - Dyspnoea exertional [Unknown]
  - Hyperhidrosis [Recovering/Resolving]
  - Fatigue [Recovering/Resolving]
  - Body height decreased [Unknown]
  - Emphysema [Unknown]
  - Dyspnoea [Recovering/Resolving]
  - Decreased appetite [Unknown]

NARRATIVE: CASE EVENT DATE: 20171002
